FAERS Safety Report 5786013-6 (Version None)
Quarter: 2008Q2

REPORT INFORMATION
  Report Type: 
  Country: None (occurrence: None)
  Receive Date: 20080624
  Receipt Date: 20080617
  Transmission Date: 20081010
  Serious: Yes (Other)
  Sender: FDA-Public Use
  Company Number: PHHY2008JP06135

PATIENT
  Sex: Male

DRUGS (3)
  1. ZOMETA [Suspect]
     Indication: BONE LESION
     Dosage: 4 MG, QMO
     Route: 042
     Dates: start: 20070109, end: 20080219
  2. RISEDRONATE SODIUM [Suspect]
     Dosage: 2.5 MG/DAILY
     Dates: start: 20040520, end: 20070108
  3. PREDONINE [Concomitant]
     Route: 048

REACTIONS (6)
  - BONE OPERATION [None]
  - GINGIVAL ERYTHEMA [None]
  - GINGIVAL INFECTION [None]
  - GINGIVAL SWELLING [None]
  - OSTEONECROSIS [None]
  - TOOTH EXTRACTION [None]
